FAERS Safety Report 10888463 (Version 4)
Quarter: 2015Q2

REPORT INFORMATION
  Report Type: Spontaneous
  Country: US (occurrence: US)
  Receive Date: 20150305
  Receipt Date: 20150626
  Transmission Date: 20150821
  Serious: Yes (Other)
  Sender: FDA-Public Use
  Company Number: US-BAYER-2015-033106

PATIENT
  Age: 31 Year
  Sex: Female
  Weight: 52.15 kg

DRUGS (6)
  1. MIRENA [Suspect]
     Active Substance: LEVONORGESTREL
     Indication: CONTRACEPTION
     Dosage: 20 MCG/24HR, CONT
     Route: 015
     Dates: start: 20100427, end: 20130130
  2. XANAX [Concomitant]
     Active Substance: ALPRAZOLAM
     Indication: DEPRESSION
  3. FLEXERIL [Concomitant]
     Active Substance: CYCLOBENZAPRINE HYDROCHLORIDE
  4. AMBIEN [Concomitant]
     Active Substance: ZOLPIDEM TARTRATE
  5. DOXYCYCLINE. [Concomitant]
     Active Substance: DOXYCYCLINE
  6. PAXIL [Concomitant]
     Active Substance: PAROXETINE HYDROCHLORIDE
     Indication: DEPRESSION

REACTIONS (10)
  - Depression [None]
  - Device breakage [None]
  - Uterine perforation [None]
  - Injury [None]
  - Anxiety [None]
  - Device issue [None]
  - Complication of device removal [None]
  - Emotional distress [None]
  - Depressed mood [None]
  - Pain [None]

NARRATIVE: CASE EVENT DATE: 201006
